FAERS Safety Report 5319598-4 (Version None)
Quarter: 2007Q2

REPORT INFORMATION
  Report Type: 
  Country: None (occurrence: None)
  Receive Date: 20070508
  Receipt Date: 20070430
  Transmission Date: 20071010
  Serious: Yes (Life-Threatening)
  Sender: FDA-Public Use
  Company Number: DE-PFIZER INC-2007035188

PATIENT
  Sex: Male
  Weight: 78 kg

DRUGS (1)
  1. ATORVASTATIN CALCIUM [Suspect]
     Indication: HYPERLIPIDAEMIA
     Dosage: DAILY DOSE:20MG
     Dates: start: 20061001, end: 20070201

REACTIONS (4)
  - ASTHENIA [None]
  - HEPATIC NECROSIS [None]
  - JAUNDICE [None]
  - TRANSAMINASES INCREASED [None]
